FAERS Safety Report 10037078 (Version 1)
Quarter: 2014Q1

REPORT INFORMATION
  Report Type: Spontaneous
  Country: GB (occurrence: GB)
  Receive Date: 20140326
  Receipt Date: 20140326
  Transmission Date: 20141002
  Serious: Yes (Other)
  Sender: FDA-Public Use
  Company Number: GB-ROCHE-1368241

PATIENT
  Age: 38 Year
  Sex: Female

DRUGS (1)
  1. PEG-INTERFERON ALFA 2A [Suspect]
     Indication: THROMBOCYTOSIS
     Route: 058

REACTIONS (1)
  - Cutaneous lupus erythematosus [Not Recovered/Not Resolved]
